FAERS Safety Report 19560909 (Version 5)
Quarter: 2021Q4

REPORT INFORMATION
  Report Type: Spontaneous
  Country: US (occurrence: US)
  Receive Date: 20210714
  Receipt Date: 20211008
  Transmission Date: 20220303
  Serious: No
  Sender: FDA-Public Use
  Company Number: US-GSKCCFUS-CASE-01106092_AE-65218

PATIENT
  Sex: Female

DRUGS (1)
  1. BENLYSTA [Suspect]
     Active Substance: BELIMUMAB
     Indication: Product used for unknown indication
     Dosage: 200 MG/ML

REACTIONS (5)
  - Injection site pain [Not Recovered/Not Resolved]
  - Injection site bruising [Unknown]
  - Device use error [Recovered/Resolved]
  - Product dose omission issue [Unknown]
  - Product complaint [Unknown]
